FAERS Safety Report 12729355 (Version 1)
Quarter: 2016Q3

REPORT INFORMATION
  Report Type: Spontaneous
  Country: GB (occurrence: GB)
  Receive Date: 20160909
  Receipt Date: 20160909
  Transmission Date: 20161109
  Serious: Yes (Hospitalization)
  Sender: FDA-Public Use
  Company Number: GB-JNJFOC-20160905437

PATIENT
  Age: 89 Year
  Sex: Female

DRUGS (16)
  1. XARELTO [Suspect]
     Active Substance: RIVAROXABAN
     Indication: EMBOLISM VENOUS
     Route: 048
     Dates: start: 20160821
  2. PREDNISOLONE. [Suspect]
     Active Substance: PREDNISOLONE
     Indication: DEEP VEIN THROMBOSIS
     Route: 048
  3. FENTANYL. [Concomitant]
     Active Substance: FENTANYL
     Route: 065
  4. FOLIC ACID. [Concomitant]
     Active Substance: FOLIC ACID
     Route: 065
  5. QUININE [Concomitant]
     Active Substance: QUININE
     Route: 065
  6. AMILORIDE [Concomitant]
     Active Substance: AMILORIDE
     Route: 065
  7. FUROSEMIDE. [Concomitant]
     Active Substance: FUROSEMIDE
     Route: 065
  8. XARELTO [Suspect]
     Active Substance: RIVAROXABAN
     Indication: DEEP VEIN THROMBOSIS
     Route: 048
     Dates: start: 20160821
  9. ALENDRONIC ACID [Suspect]
     Active Substance: ALENDRONIC ACID
     Indication: OSTEOPOROSIS PROPHYLAXIS
     Route: 048
     Dates: start: 20160821
  10. SIMVASTATIN. [Concomitant]
     Active Substance: SIMVASTATIN
     Route: 065
  11. CALCIUM CARBONATE W/COLECALCIFEROL [Concomitant]
     Active Substance: CALCIUM CARBONATE\CHOLECALCIFEROL
     Route: 065
  12. METHOTREXATE. [Concomitant]
     Active Substance: METHOTREXATE
     Route: 065
  13. BRIMONIDINE [Concomitant]
     Active Substance: BRIMONIDINE TARTRATE
     Route: 065
  14. PARACETAMOL [Concomitant]
     Active Substance: ACETAMINOPHEN
     Route: 065
  15. LATANOPROST. [Concomitant]
     Active Substance: LATANOPROST
     Route: 065
  16. DORZOLAMIDE [Concomitant]
     Active Substance: DORZOLAMIDE
     Route: 065

REACTIONS (6)
  - Gastritis [Recovering/Resolving]
  - Vomiting [Unknown]
  - Oesophagitis [Recovering/Resolving]
  - Dizziness [Unknown]
  - Haemoglobin decreased [Unknown]
  - Diarrhoea [Unknown]
